FAERS Safety Report 10187437 (Version 2)
Quarter: 2015Q2

REPORT INFORMATION
  Report Type: Spontaneous
  Country: US (occurrence: None)
  Receive Date: 20140520
  Receipt Date: 20150402
  Transmission Date: 20150821
  Serious: Yes (Hospitalization)
  Sender: FDA-Public Use
  Company Number: 201405057

PATIENT
  Age: 64 Year
  Sex: Male
  Weight: 104.33 kg

DRUGS (1)
  1. TESTIM [Suspect]
     Active Substance: TESTOSTERONE
     Indication: BLOOD TESTOSTERONE DECREASED
     Dates: start: 2010, end: 201401

REACTIONS (10)
  - Pulmonary hypertension [None]
  - Emotional disorder [None]
  - Economic problem [None]
  - Pain [None]
  - Sinus tachycardia [None]
  - Fear [None]
  - Pulmonary embolism [None]
  - Deep vein thrombosis [None]
  - Anxiety [None]
  - Quality of life decreased [None]

NARRATIVE: CASE EVENT DATE: 20110117
